FAERS Safety Report 4631589-5 (Version None)
Quarter: 2005Q2

REPORT INFORMATION
  Report Type: 
  Country: None (occurrence: None)
  Receive Date: 20050407
  Receipt Date: 20050330
  Transmission Date: 20051028
  Serious: Yes (Hospitalization)
  Sender: FDA-Public Use
  Company Number: 200510213BNE

PATIENT
  Age: 38 Year
  Sex: Female

DRUGS (1)
  1. CANESTEN ONCE (CLOTRIMAZOLE) [Suspect]
     Dosage: NI

REACTIONS (1)
  - URINARY RETENTION [None]
